FAERS Safety Report 22634006 (Version 1)
Quarter: 2023Q2

REPORT INFORMATION
  Report Type: Report from Study
  Country: US (occurrence: US)
  Receive Date: 20230623
  Receipt Date: 20230623
  Transmission Date: 20230722
  Serious: Yes (Death, Hospitalization)
  Sender: FDA-Public Use
  Company Number: US-ABBVIE-5301666

PATIENT
  Age: 83 Year
  Sex: Female
  Weight: 56.699 kg

DRUGS (5)
  1. CREON [Suspect]
     Active Substance: PANCRELIPASE AMYLASE\PANCRELIPASE LIPASE\PANCRELIPASE PROTEASE
     Indication: Pancreatic failure
     Dosage: 2 WITH MEALS, 1 WITH SNACKS,  FORM STRENGTH: 36000 UNIT
     Route: 048
     Dates: start: 202301
  2. AMIODARONE [Concomitant]
     Active Substance: AMIODARONE
     Indication: Atrial fibrillation
  3. POTASSIUM [Concomitant]
     Active Substance: POTASSIUM
     Indication: Mineral supplementation
  4. METOPROLOL [Concomitant]
     Active Substance: METOPROLOL
     Indication: Hypertension
  5. LASIX [Concomitant]
     Active Substance: FUROSEMIDE
     Indication: Cardiac failure congestive

REACTIONS (4)
  - Cardiac failure [Fatal]
  - Oxygen saturation decreased [Fatal]
  - Fall [Recovered/Resolved]
  - Cerebral disorder [Fatal]

NARRATIVE: CASE EVENT DATE: 20230617
